FAERS Safety Report 17000347 (Version 1)
Quarter: 2019Q4

REPORT INFORMATION
  Report Type: Spontaneous
  Country: US (occurrence: US)
  Receive Date: 20191106
  Receipt Date: 20191106
  Transmission Date: 20200122
  Serious: Yes (Hospitalization)
  Sender: FDA-Public Use
  Company Number: US-ABBVIE-19P-163-2986702-00

PATIENT
  Age: 46 Year
  Sex: Female

DRUGS (3)
  1. DIVALPROEX SODIUM. [Suspect]
     Active Substance: DIVALPROEX SODIUM
     Indication: INTENTIONAL OVERDOSE
     Dosage: LESS THAN 30 TABLETS
     Route: 048
  2. GLIMEPIRIDE. [Suspect]
     Active Substance: GLIMEPIRIDE
     Indication: INTENTIONAL OVERDOSE
     Route: 048
  3. LURASIDONE [Suspect]
     Active Substance: LURASIDONE
     Indication: INTENTIONAL OVERDOSE
     Dosage: LESS THAN 30 TABLETS
     Route: 048

REACTIONS (5)
  - Hypoglycaemia [Recovered/Resolved]
  - Drug level increased [Recovered/Resolved]
  - Blood insulin increased [Recovered/Resolved]
  - Insulin C-peptide increased [Recovered/Resolved]
  - Intentional overdose [Unknown]
